FAERS Safety Report 7826228-6 (Version None)
Quarter: 2011Q4

REPORT INFORMATION
  Report Type: 
  Country: None (occurrence: None)
  Receive Date: 20111020
  Receipt Date: 20111010
  Transmission Date: 20120403
  Serious: Yes (Hospitalization)
  Sender: FDA-Public Use
  Company Number: US-BIOGENIDEC-2011BI038986

PATIENT
  Age: 53 Year
  Sex: Female

DRUGS (4)
  1. TYSABRI [Concomitant]
     Indication: MULTIPLE SCLEROSIS
     Route: 042
     Dates: start: 20110712
  2. TYSABRI [Concomitant]
     Route: 042
     Dates: start: 20050124, end: 20050124
  3. TYSABRI [Concomitant]
     Route: 042
     Dates: start: 20080319, end: 20091104
  4. AVONEX [Suspect]
     Indication: MULTIPLE SCLEROSIS
     Route: 030

REACTIONS (3)
  - PNEUMONIA [None]
  - BLINDNESS [None]
  - ENCEPHALITIS [None]
